FAERS Safety Report 7215561-7 (Version None)
Quarter: 2011Q1

REPORT INFORMATION
  Report Type: 
  Country: None (occurrence: None)
  Receive Date: 20110104
  Receipt Date: 20110104
  Transmission Date: 20110831
  Serious: Yes (Hospitalization)
  Sender: FDA-Public Use
  Company Number: None

PATIENT
  Age: 78 Year
  Sex: Male
  Weight: 91 kg

DRUGS (1)
  1. GOSERELIN ACETATE [Suspect]
     Indication: PROSTATE CANCER
     Dosage: 10.8 MG OTHER OTHER
     Route: 050
     Dates: start: 20100604, end: 20100813

REACTIONS (4)
  - CONDITION AGGRAVATED [None]
  - DEPRESSION [None]
  - DISEASE RECURRENCE [None]
  - SCHIZOPHRENIA, PARANOID TYPE [None]
